FAERS Safety Report 21136237 (Version 1)
Quarter: 2022Q3

REPORT INFORMATION
  Report Type: Spontaneous
  Country: JP (occurrence: JP)
  Receive Date: 20220727
  Receipt Date: 20220727
  Transmission Date: 20221027
  Serious: Yes (Hospitalization, Other)
  Sender: FDA-Public Use
  Company Number: JP-Axellia-004394

PATIENT
  Age: 42 Year
  Sex: Male

DRUGS (4)
  1. MICAFUNGIN SODIUM [Suspect]
     Active Substance: MICAFUNGIN SODIUM
     Indication: Prophylaxis
  2. PREDNISOLONE [Concomitant]
     Active Substance: PREDNISOLONE
     Indication: Primary amyloidosis
     Dosage: 10 MG/DAY
     Route: 048
  3. ITRACONAZOLE [Concomitant]
     Active Substance: ITRACONAZOLE
     Indication: Prophylaxis
     Dosage: 200 MG/DAY
  4. PREDNISOLONE [Concomitant]
     Active Substance: PREDNISOLONE
     Indication: Primary amyloidosis
     Dosage: 10 MG/DAY

REACTIONS (1)
  - Autoimmune haemolytic anaemia [Recovered/Resolved]
